FAERS Safety Report 5468087-5 (Version None)
Quarter: 2007Q3

REPORT INFORMATION
  Report Type: 
  Country: None (occurrence: None)
  Receive Date: 20070926
  Receipt Date: 20070920
  Transmission Date: 20080115
  Serious: Yes (Death)
  Sender: FDA-Public Use
  Company Number: US-ASTRAZENECA-2006UW21594

PATIENT
  Age: 34 Year
  Sex: Female
  Weight: 113.6 kg

DRUGS (3)
  1. SEROQUEL [Suspect]
     Indication: DEPRESSION
     Route: 048
     Dates: start: 19990101, end: 20031201
  2. RISPERDAL [Concomitant]
     Dates: start: 20030401
  3. ZYPREXA [Concomitant]
     Dates: start: 19990101, end: 20030101

REACTIONS (4)
  - ASTHMA [None]
  - OBESITY [None]
  - OVERDOSE [None]
  - TYPE 2 DIABETES MELLITUS [None]
